FAERS Safety Report 18352041 (Version 1)
Quarter: 2020Q4

REPORT INFORMATION
  Report Type: Spontaneous
  Country: US (occurrence: US)
  Receive Date: 20201006
  Receipt Date: 20201006
  Transmission Date: 20210114
  Serious: Yes (Other)
  Sender: FDA-Public Use
  Company Number: US-JNJFOC-20200946184

PATIENT
  Sex: Male

DRUGS (1)
  1. DURAGESIC [Suspect]
     Active Substance: FENTANYL
     Indication: PRODUCT USED FOR UNKNOWN INDICATION
     Dosage: LAST FILLED PRESCRIPTION ON 14/AUG/2020
     Route: 062

REACTIONS (6)
  - Vomiting [Unknown]
  - Fall [Unknown]
  - Peripheral artery bypass [Unknown]
  - Dizziness [Unknown]
  - Spinal operation [Unknown]
  - Pyrexia [Unknown]
